FAERS Safety Report 8503415-5 (Version None)
Quarter: 2012Q3

REPORT INFORMATION
  Report Type: 
  Country: None (occurrence: None)
  Receive Date: 20120711
  Receipt Date: 20120702
  Transmission Date: 20120928
  Serious: Yes (Other)
  Sender: FDA-Public Use
  Company Number: US-ASTRAZENECA-2012SE44644

PATIENT
  Age: 59 Year
  Sex: Female
  Weight: 79.4 kg

DRUGS (3)
  1. LASIX [Suspect]
  2. NEXIUM [Suspect]
     Indication: GASTROOESOPHAGEAL REFLUX DISEASE
     Route: 048
     Dates: end: 20110601
  3. PRILOSEC [Suspect]

REACTIONS (8)
  - FALL [None]
  - WEIGHT INCREASED [None]
  - DRUG INEFFECTIVE [None]
  - GASTROOESOPHAGEAL REFLUX DISEASE [None]
  - COUGH [None]
  - DIZZINESS [None]
  - CARTILAGE INJURY [None]
  - INTENTIONAL DRUG MISUSE [None]
